FAERS Safety Report 19183625 (Version 1)
Quarter: 2021Q2

REPORT INFORMATION
  Report Type: Spontaneous
  Country: FR (occurrence: FR)
  Receive Date: 20210427
  Receipt Date: 20210427
  Transmission Date: 20210717
  Serious: Yes (Other)
  Sender: FDA-Public Use
  Company Number: FR-LUPIN PHARMACEUTICALS INC.-2021-05160

PATIENT
  Age: 24 Year
  Sex: Male

DRUGS (5)
  1. HYDROCORTISONE. [Suspect]
     Active Substance: HYDROCORTISONE
     Indication: ADRENOGENITAL SYNDROME
  2. HYDROCORTISONE. [Suspect]
     Active Substance: HYDROCORTISONE
     Indication: ADRENAL REST TUMOUR OF THE TESTIS
     Route: 065
  3. FLUDROCORTISONE [Suspect]
     Active Substance: FLUDROCORTISONE
     Indication: ADRENAL REST TUMOUR OF THE TESTIS
     Dosage: 100 MICROGRAM, QD
     Route: 065
  4. FLUDROCORTISONE [Suspect]
     Active Substance: FLUDROCORTISONE
     Indication: ADRENOGENITAL SYNDROME
  5. LYSODREN [Concomitant]
     Active Substance: MITOTANE
     Indication: ADRENAL REST TUMOUR OF THE TESTIS
     Dosage: 3 GRAM, QD
     Route: 048

REACTIONS (1)
  - Drug ineffective [Unknown]
